FAERS Safety Report 19207131 (Version 1)
Quarter: 2021Q2

REPORT INFORMATION
  Report Type: Spontaneous
  Country: DE (occurrence: DE)
  Receive Date: 20210503
  Receipt Date: 20210503
  Transmission Date: 20210717
  Serious: Yes (Hospitalization, Other)
  Sender: FDA-Public Use
  Company Number: NVSC2021DE092458

PATIENT
  Sex: Female

DRUGS (1)
  1. PIQRAY [Suspect]
     Active Substance: ALPELISIB
     Indication: PRODUCT USED FOR UNKNOWN INDICATION
     Dosage: UNK, QD (SINCE 20021)
     Route: 065

REACTIONS (12)
  - Decubitus ulcer [Unknown]
  - Diarrhoea [Recovering/Resolving]
  - Femoral neck fracture [Unknown]
  - Ileus [Unknown]
  - Oral candidiasis [Unknown]
  - Skin reaction [Unknown]
  - Fall [Unknown]
  - Lower limb fracture [Unknown]
  - Asthenia [Unknown]
  - Mobility decreased [Unknown]
  - Faeces hard [Unknown]
  - Impaired healing [Unknown]

NARRATIVE: CASE EVENT DATE: 20210418
